FAERS Safety Report 7998719-9 (Version None)
Quarter: 2011Q4

REPORT INFORMATION
  Report Type: 
  Country: None (occurrence: None)
  Receive Date: 20111221
  Receipt Date: 20111216
  Transmission Date: 20120403
  Serious: Yes (Hospitalization)
  Sender: FDA-Public Use
  Company Number: US-US-EMD SERONO, INC.-233903K09USA

PATIENT
  Sex: Female
  Weight: 84 kg

DRUGS (14)
  1. REBIF [Suspect]
     Route: 058
     Dates: start: 20040901, end: 20060301
  2. REBIF [Suspect]
     Route: 058
     Dates: start: 20061208
  3. TRICOR [Concomitant]
     Indication: BLOOD CHOLESTEROL INCREASED
     Route: 065
  4. ACTOS [Concomitant]
     Indication: DIABETES MELLITUS
     Route: 065
  5. ZOCOR [Concomitant]
     Indication: BLOOD CHOLESTEROL INCREASED
     Route: 065
  6. METAMUCIL-2 [Concomitant]
     Indication: DIVERTICULUM
     Route: 065
  7. GLIPIZIDE [Concomitant]
     Indication: DIABETES MELLITUS
     Route: 065
  8. REBIF [Suspect]
     Indication: MULTIPLE SCLEROSIS
     Route: 058
     Dates: start: 20030529, end: 20040101
  9. LISINOPRIL [Concomitant]
     Indication: HYPERTENSION
     Route: 065
  10. GLUCOPHAGE [Concomitant]
     Indication: DIABETES MELLITUS
     Route: 065
  11. NORVASC [Concomitant]
     Indication: HYPERTENSION
     Route: 065
  12. LOTREL [Concomitant]
     Indication: HYPERTENSION
     Route: 065
  13. TRILIPIX [Concomitant]
     Indication: BLOOD CHOLESTEROL ABNORMAL
     Route: 065
  14. PRILOSEC [Concomitant]
     Indication: GASTRIC ULCER
     Route: 065

REACTIONS (3)
  - ARTHRITIS [None]
  - HAEMOGLOBIN DECREASED [None]
  - THROMBOSIS [None]
